FAERS Safety Report 16120555 (Version 1)
Quarter: 2019Q1

REPORT INFORMATION
  Report Type: Spontaneous
  Country: US (occurrence: US)
  Receive Date: 20190326
  Receipt Date: 20190326
  Transmission Date: 20190418
  Serious: No
  Sender: FDA-Public Use
  Company Number: US-CEDIPROF, INC.-2064703

PATIENT
  Age: 66 Year
  Sex: Female

DRUGS (2)
  1. LEVO-T [Suspect]
     Active Substance: LEVOTHYROXINE SODIUM
     Indication: PRODUCT USED FOR UNKNOWN INDICATION
  2. LIOTHYRONINE SODIUM. [Concomitant]
     Active Substance: LIOTHYRONINE SODIUM

REACTIONS (10)
  - Muscle spasms [Unknown]
  - Palpitations [Unknown]
  - Vomiting [Unknown]
  - Temperature intolerance [Unknown]
  - Hyperhidrosis [Unknown]
  - Dizziness [Unknown]
  - Paraesthesia [Unknown]
  - Chest pain [Unknown]
  - Headache [Unknown]
  - Appetite disorder [Unknown]
